FAERS Safety Report 8523506-2 (Version None)
Quarter: 2012Q3

REPORT INFORMATION
  Report Type: 
  Country: None (occurrence: None)
  Receive Date: 20120709
  Receipt Date: 20120625
  Transmission Date: 20120928
  Serious: Yes (Hospitalization)
  Sender: FDA-Public Use
  Company Number: AUR-APL-2012-02832

PATIENT
  Age: 36 Year
  Sex: Male

DRUGS (8)
  1. ENALAPRIL MALEATE [Concomitant]
  2. FUROSEMIDE (FUROSEMIDE) [Concomitant]
  3. CLONIDINE [Concomitant]
  4. PIPERACILLIN AND TAZOBACTAM [Concomitant]
  5. HALOPERIDOL [Concomitant]
  6. RISPERIDONE [Suspect]
     Indication: PSYCHOMOTOR HYPERACTIVITY
     Dosage: 2 MG (1 MG, 2 IN 1 D), ORAL
     Route: 048
     Dates: start: 20120520, end: 20120608
  7. DOXAZOSIN MESYLATE (DOXAZOSIN MESILATE) [Concomitant]
  8. OMEPRAZOLE [Concomitant]

REACTIONS (4)
  - HYPERTHERMIA [None]
  - SEPSIS [None]
  - LEUKOPENIA [None]
  - THROMBOCYTOPENIA [None]
